FAERS Safety Report 7389584-1 (Version None)
Quarter: 2011Q2

REPORT INFORMATION
  Report Type: 
  Country: None (occurrence: None)
  Receive Date: 20110401
  Receipt Date: 20110329
  Transmission Date: 20111010
  Serious: Yes (Death, Hospitalization)
  Sender: FDA-Public Use
  Company Number: PHHY2011US24852

PATIENT
  Sex: Male
  Weight: 78 kg

DRUGS (4)
  1. EXJADE [Suspect]
     Indication: MYELODYSPLASTIC SYNDROME
     Dosage: 1000 MG, QD
     Route: 048
     Dates: start: 20071208, end: 20100723
  2. ATENOLOL [Concomitant]
     Indication: HYPERTENSION
     Dosage: 12.5 MG, DAILY
     Route: 048
  3. SYNTHROID [Concomitant]
     Indication: HYPOTHYROIDISM
     Dosage: 88 UG, DAILY
     Route: 048
  4. PRILOSEC [Concomitant]
     Indication: REFLUX OESOPHAGITIS
     Dosage: 20 MG, DAILY
     Route: 048

REACTIONS (5)
  - DYSPNOEA [None]
  - PNEUMONIA [None]
  - COUGH [None]
  - NON-HODGKIN'S LYMPHOMA [None]
  - PYREXIA [None]
